FAERS Safety Report 13496459 (Version 2)
Quarter: 2017Q2

REPORT INFORMATION
  Report Type: Spontaneous
  Country: FR (occurrence: FR)
  Receive Date: 20170428
  Receipt Date: 20170428
  Transmission Date: 20170830
  Serious: No
  Sender: FDA-Public Use
  Company Number: FR-JAZZ-JPI-P-001922

PATIENT
  Age: 44 Year
  Sex: Female
  Weight: 72 kg

DRUGS (22)
  1. XYREM [Suspect]
     Active Substance: SODIUM OXYBATE
     Route: 048
     Dates: start: 2009, end: 2010
  2. XYREM [Suspect]
     Active Substance: SODIUM OXYBATE
     Dosage: 3 G, QD
     Route: 048
     Dates: start: 20161130
  3. GABAPENTIN. [Concomitant]
     Active Substance: GABAPENTIN
     Dosage: UNKNOWN SINGLE (DISCONT. BETWEEN 20-JUN + 23-JUL-2007)
  4. COTAREG [Concomitant]
     Active Substance: HYDROCHLOROTHIAZIDE\VALSARTAN
  5. STILNOX [Concomitant]
     Active Substance: ZOLPIDEM TARTRATE
  6. ZOLPIDEM [Concomitant]
     Active Substance: ZOLPIDEM\ZOLPIDEM TARTRATE
     Indication: PRODUCT USED FOR UNKNOWN INDICATION
  7. XYREM [Suspect]
     Active Substance: SODIUM OXYBATE
     Indication: FIBROMYALGIA
     Route: 048
     Dates: start: 20070723
  8. XYREM [Suspect]
     Active Substance: SODIUM OXYBATE
     Indication: HYPERSOMNIA
     Route: 048
     Dates: start: 2007
  9. CLONAZEPAM. [Concomitant]
     Active Substance: CLONAZEPAM
  10. BETAXOLOL. [Concomitant]
     Active Substance: BETAXOLOL
  11. XYREM [Suspect]
     Active Substance: SODIUM OXYBATE
     Indication: VOMITING
     Route: 048
     Dates: end: 20080321
  12. XYREM [Suspect]
     Active Substance: SODIUM OXYBATE
     Route: 048
     Dates: start: 2009
  13. ATACAND [Concomitant]
     Active Substance: CANDESARTAN CILEXETIL
  14. XYREM [Suspect]
     Active Substance: SODIUM OXYBATE
     Indication: DYSSOMNIA
     Route: 048
     Dates: start: 20070620, end: 20070722
  15. CITALOPRAM HYDROBROMIDE. [Concomitant]
     Active Substance: CITALOPRAM HYDROBROMIDE
  16. FLUOXETINE HYDROCHLORIDE. [Concomitant]
     Active Substance: FLUOXETINE HYDROCHLORIDE
  17. XYREM [Suspect]
     Active Substance: SODIUM OXYBATE
     Route: 048
     Dates: start: 20080322
  18. PREGABALIN. [Concomitant]
     Active Substance: PREGABALIN
     Dosage: UNKNOWN SINGLE (DISCONT. BETWEEN 20-JUN + 23-JUL-2007)
  19. DUROGESIC [Concomitant]
     Active Substance: FENTANYL
  20. KERLONE [Concomitant]
     Active Substance: BETAXOLOL HYDROCHLORIDE
  21. XYREM [Suspect]
     Active Substance: SODIUM OXYBATE
     Route: 048
     Dates: start: 2010
  22. XYREM [Suspect]
     Active Substance: SODIUM OXYBATE
     Dosage: 4.5 G, BID
     Route: 048

REACTIONS (16)
  - Initial insomnia [Unknown]
  - Headache [Unknown]
  - Vomiting [Unknown]
  - Hypertension [Unknown]
  - Somnolence [Unknown]
  - Irritability [Unknown]
  - Off label use [Unknown]
  - Palpitations [Unknown]
  - Restless legs syndrome [Unknown]
  - Dizziness [Unknown]
  - Condition aggravated [Unknown]
  - Visual impairment [Unknown]
  - Feeling abnormal [Unknown]
  - Fatigue [Unknown]
  - Agitation [Unknown]
  - Nausea [Unknown]

NARRATIVE: CASE EVENT DATE: 2007
